FAERS Safety Report 5425758-4 (Version None)
Quarter: 2007Q3

REPORT INFORMATION
  Report Type: 
  Country: None (occurrence: None)
  Receive Date: 20070731
  Receipt Date: 20070412
  Transmission Date: 20080115
  Serious: No
  Sender: FDA-Public Use
  Company Number: 2007PV031437

PATIENT
  Age: 78 Year
  Sex: Female
  Weight: 80.7 kg

DRUGS (11)
  1. EXENATIDE(EXENATIDE) PEN, DISPOSABLE [Suspect]
     Indication: TYPE 2 DIABETES MELLITUS
     Dosage: 10 UG, 2/D, SUBCUTANEOUS; 5 UG, 2/D, SUBCUTANEOUS; 5 UG, 2/D, SUBCUTANEOUS
     Route: 058
     Dates: end: 20070307
  2. EXENATIDE(EXENATIDE) PEN, DISPOSABLE [Suspect]
     Indication: TYPE 2 DIABETES MELLITUS
     Dosage: 10 UG, 2/D, SUBCUTANEOUS; 5 UG, 2/D, SUBCUTANEOUS; 5 UG, 2/D, SUBCUTANEOUS
     Route: 058
     Dates: start: 20070308
  3. EXENATIDE(EXENATIDE) PEN, DISPOSABLE [Suspect]
     Indication: TYPE 2 DIABETES MELLITUS
     Dosage: 10 UG, 2/D, SUBCUTANEOUS; 5 UG, 2/D, SUBCUTANEOUS; 5 UG, 2/D, SUBCUTANEOUS
     Route: 058
     Dates: start: 20070324
  4. EXENATIDE(EXENATIDE) PEN, DISPOSABLE [Suspect]
  5. AVANDIA [Concomitant]
  6. GLUCOPHAGE ^BRISTOL-MYERS SUIBB^ [Concomitant]
  7. GLUCOTROL [Concomitant]
  8. METFORMIN HCL [Concomitant]
  9. TRICOR [Concomitant]
  10. ALTACE [Concomitant]
  11. ZOCOR [Concomitant]

REACTIONS (2)
  - ANOREXIA [None]
  - BLOOD GLUCOSE INCREASED [None]
